FAERS Safety Report 15643550 (Version 1)
Quarter: 2018Q4

REPORT INFORMATION
  Report Type: Spontaneous
  Country: US (occurrence: US)
  Receive Date: 20181121
  Receipt Date: 20181121
  Transmission Date: 20190205
  Serious: Yes (Death)
  Sender: FDA-Public Use
  Company Number: US-ENDO PHARMACEUTICALS INC-2018-042955

PATIENT
  Age: 57 Year
  Sex: Female
  Weight: 108.39 kg

DRUGS (2)
  1. OXYMORPHONE HCL [Suspect]
     Active Substance: OXYMORPHONE HYDROCHLORIDE
     Indication: PRODUCT USED FOR UNKNOWN INDICATION
     Dosage: UNK UNKNOWN, UNKNOWN
     Route: 065
  2. PERCOCET [Suspect]
     Active Substance: ACETAMINOPHEN\OXYCODONE HYDROCHLORIDE
     Indication: PRODUCT USED FOR UNKNOWN INDICATION
     Dosage: UNK UNKNOWN, UNKNOWN
     Route: 065

REACTIONS (6)
  - Pulmonary oedema [Fatal]
  - Myocardial infarction [Fatal]
  - Intentional product misuse [Fatal]
  - Cardiomegaly [Fatal]
  - Drug abuse [Fatal]
  - Hypertensive heart disease [Fatal]
